FAERS Safety Report 20082704 (Version 2)
Quarter: 2021Q4

REPORT INFORMATION
  Report Type: Report from Study
  Country: AU (occurrence: AU)
  Receive Date: 20211117
  Receipt Date: 20211121
  Transmission Date: 20220304
  Serious: Yes (Other)
  Sender: FDA-Public Use
  Company Number: AU-BAYER-2021A246184

PATIENT

DRUGS (1)
  1. EYLEA [Suspect]
     Active Substance: AFLIBERCEPT
     Indication: Neovascular age-related macular degeneration
     Dosage: INTRAVITREAL - 12 WEEKS, TOTAL DOSE AND LAST DOSE WERE NOT REPORTED
     Dates: start: 20200201

REACTIONS (3)
  - Retinal vascular thrombosis [Recovering/Resolving]
  - Visual impairment [Unknown]
  - Glare [Unknown]
